FAERS Safety Report 13175501 (Version 1)
Quarter: 2017Q1

REPORT INFORMATION
  Report Type: Spontaneous
  Country: US (occurrence: US)
  Receive Date: 20170201
  Receipt Date: 20170201
  Transmission Date: 20170428
  Serious: No
  Sender: FDA-Public Use
  Company Number: US-GALDERMA-US16001127

PATIENT
  Sex: 0

DRUGS (2)
  1. EPIDUO [Suspect]
     Active Substance: ADAPALENE\BENZOYL PEROXIDE
     Indication: PRODUCT USED FOR UNKNOWN INDICATION
     Dosage: 0.1% / 2.5%
     Route: 061
  2. DOXYCYCLINE. [Suspect]
     Active Substance: DOXYCYCLINE

REACTIONS (2)
  - Anxiety [Unknown]
  - Acne [Unknown]
